APPROVED DRUG PRODUCT: DESOXIMETASONE
Active Ingredient: DESOXIMETASONE
Strength: 0.05%
Dosage Form/Route: CREAM;TOPICAL
Application: A208163 | Product #001 | TE Code: AB
Applicant: LUPIN INC
Approved: Jan 10, 2017 | RLD: No | RS: No | Type: RX